FAERS Safety Report 21138505 (Version 1)
Quarter: 2022Q3

REPORT INFORMATION
  Report Type: Spontaneous
  Country: US (occurrence: None)
  Receive Date: 20220727
  Receipt Date: 20220727
  Transmission Date: 20221027
  Serious: Yes (Other)
  Sender: FDA-Public Use
  Company Number: None

PATIENT
  Age: 74 Year
  Sex: Female
  Weight: 95.25 kg

DRUGS (1)
  1. BEBTELOVIMAB [Suspect]
     Active Substance: BEBTELOVIMAB
     Indication: COVID-19
     Dosage: FREQUENCY : ONCE;?OTHER ROUTE : IV PUSH;?
     Route: 050

REACTIONS (6)
  - Chest discomfort [None]
  - Back pain [None]
  - Muscle tightness [None]
  - Pain [None]
  - Oxygen saturation decreased [None]
  - Hyperhidrosis [None]

NARRATIVE: CASE EVENT DATE: 20220726
